FAERS Safety Report 7381444-5 (Version None)
Quarter: 2011Q1

REPORT INFORMATION
  Report Type: 
  Country: None (occurrence: None)
  Receive Date: 20110329
  Receipt Date: 20110323
  Transmission Date: 20110831
  Serious: Yes (Hospitalization)
  Sender: FDA-Public Use
  Company Number: US-PFIZER INC-2011063762

PATIENT
  Age: 75 Year
  Sex: Female
  Weight: 81 kg

DRUGS (2)
  1. SUNITINIB MALATE [Suspect]
     Indication: FALLOPIAN TUBE CANCER
     Dosage: 50 MG PO QD FOR WEEKS 1-2
     Route: 048
     Dates: start: 20101014, end: 20101228
  2. EMD 121974 [Suspect]
     Indication: FALLOPIAN TUBE CANCER
     Dosage: 2000 MG IV OVER 1 HR 2X WEEKLY, 72 HRS APART OF WKS 3 AND 4 (4 DOSES TOTAL)
     Route: 042
     Dates: start: 20101014, end: 20110110

REACTIONS (1)
  - URINARY TRACT INFECTION [None]
